FAERS Safety Report 9284594 (Version 2)
Quarter: 2013Q3

REPORT INFORMATION
  Report Type: Spontaneous
  Country: US (occurrence: US)
  Receive Date: 20130512
  Receipt Date: 20130829
  Transmission Date: 20140515
  Serious: No
  Sender: FDA-Public Use
  Company Number: US-TEVA-404203USA

PATIENT
  Age: 71 Year
  Sex: Female
  Weight: 71.73 kg

DRUGS (8)
  1. NUVIGIL [Suspect]
     Indication: NERVOUS SYSTEM DISORDER
     Route: 048
     Dates: start: 201303
  2. LYRICA [Concomitant]
     Indication: SCIATICA
  3. LYRICA [Concomitant]
     Indication: FIBROMYALGIA
  4. CLONAPIN [Concomitant]
     Indication: SCIATICA
  5. CLONAPIN [Concomitant]
     Indication: FIBROMYALGIA
  6. SYNTHROID [Concomitant]
     Indication: THYROID DISORDER
  7. DIAZEPAM [Concomitant]
     Indication: ANXIETY
  8. PROCERA [Concomitant]
     Indication: MEMORY IMPAIRMENT

REACTIONS (2)
  - Heart rate increased [Recovered/Resolved]
  - Off label use [Unknown]
